FAERS Safety Report 4705121-1 (Version None)
Quarter: 2005Q3

REPORT INFORMATION
  Report Type: 
  Country: None (occurrence: None)
  Receive Date: 20050701
  Receipt Date: 20050621
  Transmission Date: 20060218
  Serious: Yes (Hospitalization)
  Sender: FDA-Public Use
  Company Number: 200511650EU

PATIENT
  Age: 86 Year
  Sex: Female

DRUGS (5)
  1. SEGURIL [Suspect]
     Indication: OEDEMA
     Route: 048
     Dates: start: 20050318, end: 20050328
  2. ATROVENT [Concomitant]
     Indication: RESPIRATORY DISORDER
     Dosage: DOSE: 500UG/2ML 100
     Route: 055
     Dates: start: 20050318, end: 20050329
  3. VENTOLIN [Concomitant]
     Indication: RESPIRATORY DISORDER
     Dosage: DOSE: 0.5 % 10ML
     Route: 055
     Dates: start: 20050318, end: 20050329
  4. URBASON [Concomitant]
     Indication: RESPIRATORY DISORDER
     Dosage: DOSE: 40MG 100
     Route: 042
     Dates: start: 20050318, end: 20050321
  5. TAVANIC [Concomitant]
     Indication: RESPIRATORY DISORDER
     Dosage: DOSE: 5MG/ML 100ML
     Route: 042
     Dates: start: 20050318, end: 20050329

REACTIONS (1)
  - RENAL FAILURE ACUTE [None]
